FAERS Safety Report 9788397 (Version 2)
Quarter: 2014Q2

REPORT INFORMATION
  Report Type: Spontaneous
  Country: JP (occurrence: JP)
  Receive Date: 20131230
  Receipt Date: 20140624
  Transmission Date: 20141212
  Serious: Yes (Hospitalization)
  Sender: FDA-Public Use
  Company Number: JP-TAKEDA-2013TEU003764

PATIENT
  Age: 65 Year
  Sex: Female

DRUGS (3)
  1. TACHOSIL [Suspect]
     Indication: PROPHYLAXIS
     Dosage: 1 SHEET OF HALF SIZE PER DAY
     Route: 003
     Dates: start: 20130517
  2. RASENAZOLIN [Concomitant]
     Indication: INFECTION PROPHYLAXIS
     Dosage: 1 G, BID
     Route: 050
     Dates: start: 20130517, end: 20130519
  3. BOLHEAL [Concomitant]
     Indication: HAEMOSTASIS
     Dosage: 5 ML, UNK
     Dates: start: 20130517, end: 20130517

REACTIONS (1)
  - Circulatory collapse [Recovered/Resolved]
